FAERS Safety Report 8226064-5 (Version None)
Quarter: 2012Q1

REPORT INFORMATION
  Report Type: 
  Country: None (occurrence: None)
  Receive Date: 20120319
  Receipt Date: 20120307
  Transmission Date: 20120608
  Serious: Yes (Life-Threatening)
  Sender: FDA-Public Use
  Company Number: AUR-APL-2012-01338

PATIENT
  Age: 81 Year
  Sex: Female

DRUGS (7)
  1. MELPERONE (MELPERONE) [Suspect]
     Indication: PRODUCT USED FOR UNKNOWN INDICATION
     Dosage: (50 MG, 1 D), ORAL, (37.5 MG, 1 D), ORAL, (12.5 MG, 1 D), ORAL
     Route: 048
     Dates: start: 20111124, end: 20111125
  2. MELPERONE (MELPERONE) [Suspect]
     Indication: PRODUCT USED FOR UNKNOWN INDICATION
     Dosage: (50 MG, 1 D), ORAL, (37.5 MG, 1 D), ORAL, (12.5 MG, 1 D), ORAL
     Route: 048
     Dates: start: 20111205
  3. MELPERONE (MELPERONE) [Suspect]
     Indication: PRODUCT USED FOR UNKNOWN INDICATION
     Dosage: (50 MG, 1 D), ORAL, (37.5 MG, 1 D), ORAL, (12.5 MG, 1 D), ORAL
     Route: 048
     Dates: start: 20111126, end: 20111204
  4. ZYPREXA [Suspect]
     Indication: PRODUCT USED FOR UNKNOWN INDICATION
     Dosage: (10 MG, 1 D), ORAL
     Route: 048
  5. SERTRALINE HYDROCHLORIDE [Suspect]
     Indication: PRODUCT USED FOR UNKNOWN INDICATION
     Dosage: (25 MG, 1 D), ORAL, (50 MG, 1 D), ORAL, (75 MG, 1 D), ORAL
     Route: 048
     Dates: start: 20111118, end: 20111122
  6. SERTRALINE HYDROCHLORIDE [Suspect]
     Indication: PRODUCT USED FOR UNKNOWN INDICATION
     Dosage: (25 MG, 1 D), ORAL, (50 MG, 1 D), ORAL, (75 MG, 1 D), ORAL
     Route: 048
     Dates: start: 20111123, end: 20111201
  7. SERTRALINE HYDROCHLORIDE [Suspect]
     Indication: PRODUCT USED FOR UNKNOWN INDICATION
     Dosage: (25 MG, 1 D), ORAL, (50 MG, 1 D), ORAL, (75 MG, 1 D), ORAL
     Route: 048
     Dates: start: 20111202

REACTIONS (8)
  - EXTRASYSTOLES [None]
  - ELECTROCARDIOGRAM T WAVE ABNORMAL [None]
  - ATRIAL FLUTTER [None]
  - FALL [None]
  - GASTROENTERITIS NOROVIRUS [None]
  - CARDIOMYOPATHY [None]
  - ATRIAL FIBRILLATION [None]
  - DEHYDRATION [None]
